FAERS Safety Report 7083619-1 (Version None)
Quarter: 2010Q4

REPORT INFORMATION
  Report Type: 
  Country: None (occurrence: None)
  Receive Date: 20101103
  Receipt Date: 20101103
  Transmission Date: 20110411
  Serious: Yes (Hospitalization)
  Sender: FDA-Public Use
  Company Number: None

PATIENT
  Age: 37 Year
  Sex: Female
  Weight: 48.9885 kg

DRUGS (1)
  1. SAVELLA [Suspect]
     Indication: FIBROMYALGIA
     Dosage: TAPER -100MG- TWICE A DAY PO
     Route: 048
     Dates: start: 20100929, end: 20101012

REACTIONS (3)
  - DRUG WITHDRAWAL SYNDROME [None]
  - HYPOAESTHESIA [None]
  - PARAESTHESIA [None]
